FAERS Safety Report 18434954 (Version 1)
Quarter: 2020Q4

REPORT INFORMATION
  Report Type: Spontaneous
  Country: US (occurrence: US)
  Receive Date: 20201028
  Receipt Date: 20201028
  Transmission Date: 20210114
  Serious: No
  Sender: FDA-Public Use
  Company Number: US-DRREDDYS-USA/USA/20/0127890

PATIENT
  Age: 96 Year
  Sex: Male
  Weight: 54 kg

DRUGS (2)
  1. HABITROL [Suspect]
     Active Substance: NICOTINE
     Indication: TOBACCO USER
     Dosage: ONE PATCH FOR MORE THAN 24 HOURS
     Route: 062
     Dates: start: 20201005
  2. LITHIUM. [Concomitant]
     Active Substance: LITHIUM
     Indication: PRODUCT USED FOR UNKNOWN INDICATION

REACTIONS (3)
  - Product adhesion issue [Unknown]
  - Underdose [Unknown]
  - Product use issue [Unknown]
